FAERS Safety Report 11807552 (Version 3)
Quarter: 2015Q4

REPORT INFORMATION
  Report Type: Other
  Country: GB (occurrence: GB)
  Receive Date: 20151207
  Receipt Date: 20151223
  Transmission Date: 20160305
  Serious: Yes (Death, Hospitalization, Other)
  Sender: FDA-Public Use
  Company Number: GB-SHIRE-GB201515650

PATIENT
  Age: 52 Year
  Sex: Male

DRUGS (1)
  1. VPRIV [Suspect]
     Active Substance: VELAGLUCERASE ALFA
     Indication: GAUCHER^S DISEASE
     Dosage: 2400 IU, 1X/2WKS
     Route: 041
     Dates: start: 20110208, end: 201511

REACTIONS (15)
  - Death [Fatal]
  - Joint swelling [Unknown]
  - Sepsis [Unknown]
  - Urinary tract infection [Unknown]
  - Diabetes mellitus [Not Recovered/Not Resolved]
  - Chromaturia [Unknown]
  - Gastrointestinal haemorrhage [Unknown]
  - Mitral valve disease [Unknown]
  - Cellulitis [Unknown]
  - Infusion related reaction [Unknown]
  - Peripheral swelling [Unknown]
  - Activities of daily living impaired [Unknown]
  - Pain in extremity [Unknown]
  - Gout [Unknown]
  - Erythema [Unknown]

NARRATIVE: CASE EVENT DATE: 2015
